FAERS Safety Report 8318918-6 (Version None)
Quarter: 2012Q2

REPORT INFORMATION
  Report Type: 
  Country: None (occurrence: None)
  Receive Date: 20120427
  Receipt Date: 20120418
  Transmission Date: 20120825
  Serious: Yes (Disabling, Other)
  Sender: FDA-Public Use
  Company Number: BR-ASTRAZENECA-2012SE21942

PATIENT
  Age: 67 Year
  Sex: Female
  Weight: 70 kg

DRUGS (5)
  1. EUTHYROX [Concomitant]
     Route: 048
     Dates: start: 20020101
  2. CRESTOR [Suspect]
     Indication: BLOOD CHOLESTEROL INCREASED
     Route: 048
     Dates: start: 20040101, end: 20120101
  3. OSTEONUTRI [Concomitant]
  4. LOSARTAN POTASSIUM [Concomitant]
  5. CRESTOR [Suspect]
     Route: 048
     Dates: start: 20120201, end: 20120301

REACTIONS (11)
  - LABYRINTHITIS [None]
  - GASTROOESOPHAGEAL REFLUX DISEASE [None]
  - BLOOD CHOLESTEROL INCREASED [None]
  - HEADACHE [None]
  - OSTEOPOROSIS [None]
  - INTENTIONAL DRUG MISUSE [None]
  - FOOT FRACTURE [None]
  - LIMB INJURY [None]
  - ABDOMINAL PAIN UPPER [None]
  - HYPERTENSION [None]
  - DRUG INEFFECTIVE [None]
